FAERS Safety Report 6042537-8 (Version None)
Quarter: 2009Q1

REPORT INFORMATION
  Report Type: 
  Country: None (occurrence: None)
  Receive Date: 20090118
  Receipt Date: 20051222
  Transmission Date: 20090719
  Serious: Yes (Hospitalization)
  Sender: FDA-Public Use
  Company Number: DE-PFIZER INC-2001078845DE

PATIENT

DRUGS (6)
  1. CELECOXIB [Suspect]
     Indication: ADENOMATOUS POLYPOSIS COLI
     Dosage: 400 MG, 1X/DAY
     Dates: start: 20011005, end: 20011017
  2. MOLSIDOMINE [Concomitant]
     Dates: start: 19950101
  3. ISOSORBIDE DINITRATE [Concomitant]
     Dates: start: 19950101
  4. OXIS TURBUHALER ^DRACO^ [Concomitant]
     Dates: start: 19990101
  5. SODIUM CHLORIDE [Concomitant]
     Dates: start: 20010801
  6. PANTOZOL [Concomitant]
     Dates: start: 20010801

REACTIONS (4)
  - ANGINA PECTORIS [None]
  - ANOREXIA [None]
  - ASTHMA [None]
  - PALPITATIONS [None]
